FAERS Safety Report 18313400 (Version 2)
Quarter: 2020Q4

REPORT INFORMATION
  Report Type: Other
  Country: CA (occurrence: CA)
  Receive Date: 20200925
  Receipt Date: 20201012
  Transmission Date: 20210113
  Serious: Yes (Other)
  Sender: FDA-Public Use
  Company Number: CA-APOTEX-2020AP018376

PATIENT
  Age: 57 Month
  Sex: Male
  Weight: 83 kg

DRUGS (1)
  1. ATORVASTATIN [Suspect]
     Active Substance: ATORVASTATIN
     Indication: PRODUCT USED FOR UNKNOWN INDICATION
     Dosage: 10 MILLIGRAM, QD
     Route: 048

REACTIONS (7)
  - Chromaturia [Unknown]
  - Urine odour abnormal [Unknown]
  - Dizziness [Unknown]
  - Headache [Unknown]
  - Myalgia [Unknown]
  - Product use issue [Unknown]
  - Off label use [Unknown]
